FAERS Safety Report 7746021-2 (Version None)
Quarter: 2011Q3

REPORT INFORMATION
  Report Type: 
  Country: None (occurrence: None)
  Receive Date: 20110913
  Receipt Date: 20110505
  Transmission Date: 20111222
  Serious: No
  Sender: FDA-Public Use
  Company Number: CA-ELI_LILLY_AND_COMPANY-CA201105001676

PATIENT
  Age: 46 Year
  Sex: Male

DRUGS (11)
  1. CYMBALTA [Suspect]
     Dosage: 90 MG, UNK
     Dates: end: 20110501
  2. ZYPREXA [Suspect]
     Dosage: 10 MG, UNK
  3. ZYPREXA [Suspect]
     Dosage: 10 MG, UNK
  4. CYMBALTA [Suspect]
     Indication: DEPRESSION
     Dosage: 60 MG, UNK
     Dates: start: 20090101
  5. ZYPREXA [Suspect]
     Indication: DEPRESSION
     Dosage: 5 MG, UNK
  6. CYMBALTA [Suspect]
     Dosage: 90 MG, UNK
  7. ZYPREXA [Suspect]
     Dosage: 5 MG, UNK
     Dates: start: 20090101
  8. PAXIL [Concomitant]
     Indication: DEPRESSION
  9. CYMBALTA [Suspect]
     Dosage: 30 MG, UNK
  10. CYMBALTA [Suspect]
     Dosage: 60 MG, UNK
     Dates: start: 20110501
  11. CYMBALTA [Suspect]
     Dosage: 15 MG, UNKNOWN
     Dates: start: 20110701

REACTIONS (11)
  - DRUG WITHDRAWAL SYNDROME [None]
  - LOGORRHOEA [None]
  - VISION BLURRED [None]
  - IRRITABILITY [None]
  - ASTHENIA [None]
  - HYPERHIDROSIS [None]
  - WRONG TECHNIQUE IN DRUG USAGE PROCESS [None]
  - FATIGUE [None]
  - HEPATIC ENZYME INCREASED [None]
  - INTENTIONAL DRUG MISUSE [None]
  - ANGER [None]
